FAERS Safety Report 7501773-1 (Version None)
Quarter: 2011Q2

REPORT INFORMATION
  Report Type: 
  Country: None (occurrence: None)
  Receive Date: 20110523
  Receipt Date: 20110523
  Transmission Date: 20111010
  Serious: Yes (Hospitalization, Other)
  Sender: FDA-Public Use
  Company Number: None

PATIENT
  Age: 58 Year
  Sex: Male
  Weight: 97.7 kg

DRUGS (11)
  1. RAPAFLO [Concomitant]
  2. AIPHAGAN [Concomitant]
  3. CEFAZOLIN [Suspect]
     Indication: ANTIBIOTIC PROPHYLAXIS
     Dosage: ONCE IV RECENT
     Route: 042
  4. BENICAR [Concomitant]
  5. XALATAN [Concomitant]
  6. ASPIRIN [Concomitant]
  7. CEFIXIME [Suspect]
     Indication: PROSTATISM
     Dosage: X5 DROP PO RECENT
     Route: 048
  8. METFORMIN HCL [Concomitant]
  9. COLACE [Concomitant]
  10. CLINDAMYCIN [Concomitant]
  11. OXYCONTIN [Concomitant]

REACTIONS (2)
  - ERYTHEMA [None]
  - PRURITUS [None]
